FAERS Safety Report 14108005 (Version 1)
Quarter: 2017Q4

REPORT INFORMATION
  Report Type: Spontaneous
  Country: US (occurrence: US)
  Receive Date: 20171019
  Receipt Date: 20171019
  Transmission Date: 20180321
  Serious: Yes (Other)
  Sender: FDA-Public Use
  Company Number: None

PATIENT
  Age: 51 Year
  Sex: Male
  Weight: 92.25 kg

DRUGS (4)
  1. TOPAMAX [Suspect]
     Active Substance: TOPIRAMATE
     Indication: AFFECTIVE DISORDER
     Route: 048
  2. TOPAMAX [Suspect]
     Active Substance: TOPIRAMATE
     Indication: HEADACHE
     Route: 048
  3. ZOLOFT [Concomitant]
     Active Substance: SERTRALINE HYDROCHLORIDE
  4. ZYRTEC [Concomitant]
     Active Substance: CETIRIZINE HYDROCHLORIDE

REACTIONS (7)
  - Tremor [None]
  - Muscle spasms [None]
  - Foaming at mouth [None]
  - Clonic convulsion [None]
  - Arthralgia [None]
  - Confusional state [None]
  - Nausea [None]

NARRATIVE: CASE EVENT DATE: 20170925
